FAERS Safety Report 16786144 (Version 2)
Quarter: 2022Q4

REPORT INFORMATION
  Report Type: Spontaneous
  Country: CA (occurrence: CA)
  Receive Date: 20190909
  Receipt Date: 20221017
  Transmission Date: 20230112
  Serious: Yes (Hospitalization, Other)
  Sender: FDA-Public Use
  Company Number: CA-PFIZER INC-2019385923

PATIENT
  Age: 45 Year
  Sex: Male
  Weight: 81.179 kg

DRUGS (4)
  1. MINOXIDIL [Suspect]
     Active Substance: MINOXIDIL
     Indication: Alopecia
     Dosage: UNK
     Route: 061
  2. ROGAINE [Suspect]
     Active Substance: MINOXIDIL
     Indication: Alopecia
     Dosage: 5 ML, 2X/DAY
     Route: 061
     Dates: start: 20020101, end: 20110425
  3. ZOPICLONE [Concomitant]
     Active Substance: ZOPICLONE
     Indication: Nervousness
     Dosage: 5 MG, 2X/DAY
     Route: 065
     Dates: start: 20110125
  4. ZOPICLONE [Concomitant]
     Active Substance: ZOPICLONE
     Indication: Insomnia

REACTIONS (47)
  - Abdominal pain [Unknown]
  - Acarodermatitis [Unknown]
  - Alopecia [Unknown]
  - Application site infection [Unknown]
  - Application site pain [Unknown]
  - Application site reaction [Unknown]
  - Application site ulcer [Unknown]
  - Blood test abnormal [Unknown]
  - Burning sensation [Unknown]
  - Cellulitis [Unknown]
  - Ear infection [Unknown]
  - Eczema [Unknown]
  - Folliculitis [Recovering/Resolving]
  - Hair growth abnormal [Not Recovered/Not Resolved]
  - Hair texture abnormal [Unknown]
  - Headache [Unknown]
  - Hypertrichosis [Unknown]
  - Infection [Unknown]
  - Lethargy [Unknown]
  - Loss of consciousness [Unknown]
  - Malaise [Unknown]
  - Nervous system disorder [Unknown]
  - Neurodermatitis [Recovering/Resolving]
  - Pollakiuria [Unknown]
  - Product residue present [Unknown]
  - Product residue present [Unknown]
  - Scar [Unknown]
  - Skin infection [Unknown]
  - Subcutaneous abscess [Recovering/Resolving]
  - Swelling [Unknown]
  - Testicular pain [Recovering/Resolving]
  - Urinary incontinence [Recovering/Resolving]
  - Urine analysis abnormal [Unknown]
  - Accidental exposure to product [Unknown]
  - Loss of personal independence in daily activities [Unknown]
  - Overdose [Unknown]
  - Pain of skin [Unknown]
  - Illness [Unknown]
  - Pyrexia [Unknown]
  - Syncope [Unknown]
  - Fatigue [Unknown]
  - Discomfort [Unknown]
  - Lymph node pain [Unknown]
  - Pruritus [Unknown]
  - Skin lesion [Unknown]
  - Off label use [Unknown]
  - Product use issue [Unknown]
